FAERS Safety Report 18258296 (Version 3)
Quarter: 2022Q2

REPORT INFORMATION
  Report Type: Spontaneous
  Country: US (occurrence: US)
  Receive Date: 20200911
  Receipt Date: 20220604
  Transmission Date: 20220721
  Serious: No
  Sender: FDA-Public Use
  Company Number: US-SA-2020SA245974

PATIENT
  Sex: Female

DRUGS (30)
  1. AUBAGIO [Suspect]
     Active Substance: TERIFLUNOMIDE
     Indication: Multiple sclerosis
     Dosage: 14 MG, QD
     Route: 048
     Dates: start: 20160506
  2. FORTEO [Concomitant]
     Active Substance: TERIPARATIDE
  3. ALBUTEROL SULFATE [Concomitant]
     Active Substance: ALBUTEROL SULFATE
  4. ASMANEX [Concomitant]
     Active Substance: MOMETASONE FUROATE
  5. ASPIRIN [Concomitant]
     Active Substance: ASPIRIN
  6. ATORVASTATIN [Concomitant]
     Active Substance: ATORVASTATIN
  7. BIOTIN [Concomitant]
     Active Substance: BIOTIN
  8. CALCIUM [Concomitant]
     Active Substance: CALCIUM
  9. CHLOR-TRIMETON [Concomitant]
     Active Substance: CHLORPHENIRAMINE MALEATE
  10. DAILY-VITE [Concomitant]
  11. DICLOFENAC [Concomitant]
     Active Substance: DICLOFENAC
  12. EPIPEN [Concomitant]
     Active Substance: EPINEPHRINE
  13. FLOMAX [Concomitant]
     Active Substance: TAMSULOSIN HYDROCHLORIDE
  14. HUMALOG [Concomitant]
     Active Substance: INSULIN LISPRO
  15. HYDROCHLOROTHIAZIDE [Concomitant]
     Active Substance: HYDROCHLOROTHIAZIDE
  16. LASIX [Concomitant]
     Active Substance: FUROSEMIDE
  17. LORAZEPAM [Concomitant]
     Active Substance: LORAZEPAM
  18. LUMIGAN [Concomitant]
     Active Substance: BIMATOPROST
  19. METOPROLOL [Concomitant]
     Active Substance: METOPROLOL
  20. VITAMINS NOS [Concomitant]
     Active Substance: VITAMINS
  21. NEURONTIN [Concomitant]
     Active Substance: GABAPENTIN
  22. OMEPRAZOLE [Concomitant]
     Active Substance: OMEPRAZOLE
  23. PLAVIX [Concomitant]
     Active Substance: CLOPIDOGREL BISULFATE
  24. PREMPRO [Concomitant]
     Active Substance: ESTROGENS, CONJUGATED\MEDROXYPROGESTERONE ACETATE
  25. PROVENTIL [Concomitant]
     Active Substance: ALBUTEROL
  26. PULMICORT TURBUHALER [Concomitant]
     Active Substance: BUDESONIDE
  27. TYLENOL [Concomitant]
     Active Substance: ACETAMINOPHEN
  28. VITAMIN B COMPLEX [Concomitant]
     Active Substance: CYANOCOBALAMIN\DEXPANTHENOL\NIACINAMIDE\PYRIDOXINE HYDROCHLORIDE\RIBOFLAVIN 5^-PHOSPHATE SODIUM\THIA
  29. TRIAMCINOLONE ACETONIDE [Concomitant]
     Active Substance: TRIAMCINOLONE ACETONIDE
     Indication: Asthma
  30. DALFAMPRIDINE [Concomitant]
     Active Substance: DALFAMPRIDINE
     Dosage: UNK
     Route: 065

REACTIONS (3)
  - Polyp [Recovering/Resolving]
  - Liver disorder [Unknown]
  - Liver function test increased [Unknown]
